FAERS Safety Report 19077467 (Version 1)
Quarter: 2021Q1

REPORT INFORMATION
  Report Type: Spontaneous
  Country: US (occurrence: US)
  Receive Date: 20210330
  Receipt Date: 20210330
  Transmission Date: 20210420
  Serious: Yes (Other)
  Sender: FDA-Public Use
  Company Number: None

PATIENT
  Age: 62 Year
  Sex: Male
  Weight: 77.2 kg

DRUGS (1)
  1. VALSARTAN 320 MG [Suspect]
     Active Substance: VALSARTAN
     Indication: DRUG THERAPY
     Route: 048
     Dates: start: 20210121, end: 20210201

REACTIONS (4)
  - Pain in extremity [None]
  - Peripheral swelling [None]
  - Vascular pain [None]
  - Rash [None]

NARRATIVE: CASE EVENT DATE: 20210201
